FAERS Safety Report 4891694-5 (Version None)
Quarter: 2005Q4

REPORT INFORMATION
  Report Type: 
  Country: None (occurrence: None)
  Receive Date: 20051220
  Receipt Date: 20050913
  Transmission Date: 20060501
  Serious: Yes (Other)
  Sender: FDA-Public Use
  Company Number: 417755

PATIENT
  Age: 73 Year
  Sex: Female
  Weight: 68.5 kg

DRUGS (14)
  1. BONIVA [Suspect]
     Indication: OSTEOPOROSIS
     Dosage: 150 MG  1 PER MONTH  ORAL
     Route: 048
     Dates: start: 20050801, end: 20050801
  2. SYNTHROID [Concomitant]
  3. INDAPAMIDE [Concomitant]
  4. METHOTREXATE [Concomitant]
  5. NABUMETONE [Concomitant]
  6. FOLIC ACID [Concomitant]
  7. MAGNESIUM SULFATE [Concomitant]
  8. POTASSIUM (POTASSIUM NOS) [Concomitant]
  9. VERAPAMIL [Concomitant]
  10. VITAMINS-MULTIVITAMIN (MULTIVITAMIN NOS) [Concomitant]
  11. ASPIRIN [Concomitant]
  12. OMEPRAZOLE [Concomitant]
  13. SIMVASTATIN [Concomitant]
  14. ACETAMINOPHEN [Concomitant]

REACTIONS (8)
  - ARTHRALGIA [None]
  - INSOMNIA [None]
  - MOBILITY DECREASED [None]
  - NECK PAIN [None]
  - PAIN [None]
  - PARAESTHESIA [None]
  - RHEUMATOID ARTHRITIS [None]
  - SHOULDER PAIN [None]
